FAERS Safety Report 5515023-9 (Version None)
Quarter: 2007Q4

REPORT INFORMATION
  Report Type: 
  Country: None (occurrence: None)
  Receive Date: 20071113
  Receipt Date: 20061228
  Transmission Date: 20080405
  Serious: No
  Sender: FDA-Public Use
  Company Number: A0628008A

PATIENT
  Age: 37 Year
  Sex: Female
  Weight: 65.9 kg

DRUGS (1)
  1. CARVEDILOL [Suspect]
     Dosage: 25MG TWICE PER DAY
     Route: 048

REACTIONS (1)
  - CARDIAC DISORDER [None]
